FAERS Safety Report 23913715 (Version 1)
Quarter: 2024Q2

REPORT INFORMATION
  Report Type: Spontaneous
  Country: DE (occurrence: DE)
  Receive Date: 20240529
  Receipt Date: 20240529
  Transmission Date: 20240715
  Serious: Yes (Hospitalization, Other)
  Sender: FDA-Public Use
  Company Number: DE-AMGEN-DEUSP2024103000

PATIENT

DRUGS (3)
  1. FILGRASTIM [Suspect]
     Active Substance: FILGRASTIM
     Indication: Haematopoietic stem cell mobilisation
     Dosage: UNK, 5-10 MICROGRAM/KG DAY 5 UNTIL APHERESIS
     Route: 058
  2. CYCLOPHOSPHAMIDE [Suspect]
     Active Substance: CYCLOPHOSPHAMIDE
     Indication: Haematopoietic stem cell mobilisation
     Dosage: 2000 MILLIGRAM/SQ. METER (DAY 1)
     Route: 042
  3. ETOPOSIDE [Suspect]
     Active Substance: ETOPOSIDE
     Indication: Haematopoietic stem cell mobilisation
     Dosage: 200 MILLIGRAM/SQ. METER (DAY 1-3)
     Route: 042

REACTIONS (5)
  - Febrile neutropenia [Unknown]
  - Platelet transfusion [Unknown]
  - Red blood cell transfusion [Unknown]
  - Therapeutic product effect incomplete [Unknown]
  - Treatment failure [Unknown]
